FAERS Safety Report 9618369 (Version 2)
Quarter: 2013Q4

REPORT INFORMATION
  Report Type: Report from Study
  Country: DE (occurrence: DE)
  Receive Date: 20131014
  Receipt Date: 20131112
  Transmission Date: 20140711
  Serious: Yes (Hospitalization)
  Sender: FDA-Public Use
  Company Number: DE-BRISTOL-MYERS SQUIBB COMPANY-19527191

PATIENT
  Age: 57 Year
  Sex: Male
  Weight: 63 kg

DRUGS (4)
  1. CETUXIMAB [Suspect]
     Indication: TONGUE CANCER RECURRENT
     Route: 042
     Dates: start: 20130129
  2. CISPLATIN [Suspect]
     Indication: TONGUE CANCER RECURRENT
     Route: 042
     Dates: start: 20130129
  3. FLUOROURACIL [Suspect]
     Indication: TONGUE CANCER RECURRENT
     Route: 042
     Dates: start: 20130129
  4. DOCETAXEL [Suspect]
     Indication: TONGUE CANCER RECURRENT
     Route: 042
     Dates: start: 20130129

REACTIONS (1)
  - Haemorrhage [Recovered/Resolved]
